FAERS Safety Report 7209481-1 (Version None)
Quarter: 2010Q4

REPORT INFORMATION
  Report Type: 
  Country: None (occurrence: None)
  Receive Date: 20101222
  Receipt Date: 20101210
  Transmission Date: 20110411
  Serious: Yes (Life-Threatening, Hospitalization, Other)
  Sender: FDA-Public Use
  Company Number: GER/GER/10/0016415

PATIENT
  Age: 82 Year
  Sex: Female
  Weight: 93 kg

DRUGS (3)
  1. IBUPROFEN [Suspect]
     Indication: PRODUCT USED FOR UNKNOWN INDICATION
     Dosage: 600 MG, 2 IN 1 D, ORAL
     Route: 048
     Dates: start: 20090427, end: 20100814
  2. NOVODIGAL (BETA-ACETYLDIGOXIN) [Suspect]
     Indication: PRODUCT USED FOR UNKNOWN INDICATION
     Dosage: 0.2 MG, 1 IN 1 D, ORAL
     Route: 048
     Dates: start: 20090427, end: 20100814
  3. ATACAND [Suspect]
     Indication: PRODUCT USED FOR UNKNOWN INDICATION
     Dosage: 32 MG, 1 IN 1 D, ORAL
     Route: 048
     Dates: start: 20090427, end: 20100814

REACTIONS (8)
  - BRADYCARDIA [None]
  - DECREASED APPETITE [None]
  - DEHYDRATION [None]
  - FLUID INTAKE REDUCED [None]
  - HYPERKALAEMIA [None]
  - RENAL FAILURE ACUTE [None]
  - SKELETAL INJURY [None]
  - THERAPEUTIC AGENT TOXICITY [None]
